FAERS Safety Report 13081359 (Version 1)
Quarter: 2017Q1

REPORT INFORMATION
  Report Type: Spontaneous
  Country: US (occurrence: US)
  Receive Date: 20170103
  Receipt Date: 20170103
  Transmission Date: 20170428
  Serious: No
  Sender: FDA-Public Use
  Company Number: US-PFIZER INC-2016595131

PATIENT
  Age: 81 Year
  Sex: Female

DRUGS (10)
  1. BACTRIM [Suspect]
     Active Substance: SULFAMETHOXAZOLE\TRIMETHOPRIM
     Dosage: UNK
  2. DESIPRAMINE [Suspect]
     Active Substance: DESIPRAMINE
     Dosage: UNK
  3. VASOTEC [Suspect]
     Active Substance: ENALAPRIL MALEATE
     Dosage: UNK
  4. VIVACTIL [Suspect]
     Active Substance: PROTRIPTYLINE HYDROCHLORIDE
     Dosage: UNK
  5. ADALAT [Suspect]
     Active Substance: NIFEDIPINE
     Dosage: UNK
  6. ALDOMET [Suspect]
     Active Substance: METHYLDOPA
     Dosage: UNK
  7. ZIAC [Suspect]
     Active Substance: BISOPROLOL FUMARATE\HYDROCHLOROTHIAZIDE
     Dosage: UNK
  8. HYLOREL [Suspect]
     Active Substance: GUANADREL SULFATE
     Dosage: UNK
  9. ENTEX LA [Suspect]
     Active Substance: GUAIFENESIN\PHENYLEPHRINE HYDROCHLORIDE
     Dosage: UNK
  10. VANTIN [Suspect]
     Active Substance: CEFPODOXIME PROXETIL
     Dosage: UNK

REACTIONS (1)
  - Drug hypersensitivity [Unknown]
